FAERS Safety Report 4458613-7 (Version None)
Quarter: 2004Q3

REPORT INFORMATION
  Report Type: 
  Country: None (occurrence: None)
  Receive Date: 20040917
  Receipt Date: 20030729
  Transmission Date: 20050211
  Serious: Yes (Congenital Anomaly)
  Sender: FDA-Public Use
  Company Number: US-JNJFOC-20030707497

PATIENT
  Age: 18 Month
  Sex: Female

DRUGS (1)
  1. TOPAMAX [Suspect]
     Indication: MATERNAL DRUGS AFFECTING FOETUS
     Dosage: TRANSPLACENTAL
     Route: 064

REACTIONS (1)
  - STRABISMUS [None]
